FAERS Safety Report 7019647-1 (Version None)
Quarter: 2010Q3

REPORT INFORMATION
  Report Type: 
  Country: None (occurrence: None)
  Receive Date: 20100928
  Receipt Date: 20100920
  Transmission Date: 20110219
  Serious: Yes (Hospitalization)
  Sender: FDA-Public Use
  Company Number: PHHY2010US62474

PATIENT
  Sex: Female
  Weight: 47.166 kg

DRUGS (1)
  1. RECLAST [Suspect]
     Indication: OSTEOPOROSIS
     Dosage: 05 MG PER 100 ML, ONCE A YEAR
     Route: 042
     Dates: start: 20081116

REACTIONS (7)
  - BLOOD CREATININE INCREASED [None]
  - BLOOD UREA INCREASED [None]
  - ERYTHEMA [None]
  - PAIN IN JAW [None]
  - STENT PLACEMENT [None]
  - SWELLING [None]
  - TOOTH LOSS [None]
